FAERS Safety Report 20860876 (Version 3)
Quarter: 2022Q3

REPORT INFORMATION
  Report Type: Spontaneous
  Country: CO (occurrence: CO)
  Receive Date: 20220523
  Receipt Date: 20220729
  Transmission Date: 20221027
  Serious: No
  Sender: FDA-Public Use
  Company Number: CO-PFIZER INC-202200638501

PATIENT
  Sex: Male

DRUGS (1)
  1. GENOTROPIN [Suspect]
     Active Substance: SOMATROPIN
     Dosage: UNK
     Route: 058

REACTIONS (3)
  - Drug dose omission by device [Unknown]
  - Device occlusion [Unknown]
  - Device use issue [Unknown]

NARRATIVE: CASE EVENT DATE: 20220424
